FAERS Safety Report 22941806 (Version 4)
Quarter: 2023Q4

REPORT INFORMATION
  Report Type: Other
  Country: JP (occurrence: JP)
  Receive Date: 20230914
  Receipt Date: 20231214
  Transmission Date: 20240110
  Serious: Yes (Other)
  Sender: FDA-Public Use
  Company Number: JP-CHUGAI-2023032853AA

PATIENT
  Age: 56 Year
  Sex: Female
  Weight: 43.7 kg

DRUGS (14)
  1. POLIVY [Suspect]
     Active Substance: POLATUZUMAB VEDOTIN-PIIQ
     Indication: Diffuse large B-cell lymphoma
     Dosage: 78.6 MILLIGRAM, SINGLE
     Route: 065
     Dates: start: 20230622, end: 20230622
  2. POLIVY [Suspect]
     Active Substance: POLATUZUMAB VEDOTIN-PIIQ
     Dosage: 73 MILLIGRAM
     Route: 065
     Dates: start: 20230711, end: 20231010
  3. RITUXIMAB [Concomitant]
     Active Substance: RITUXIMAB
     Indication: Diffuse large B-cell lymphoma
     Dosage: 491 MILLIGRAM, SINGLE
     Route: 041
     Dates: start: 20230621, end: 20230621
  4. RITUXIMAB [Concomitant]
     Active Substance: RITUXIMAB
     Dosage: 475 MILLIGRAM
     Route: 041
     Dates: start: 20230711, end: 20231010
  5. CYCLOPHOSPHAMIDE [Concomitant]
     Active Substance: CYCLOPHOSPHAMIDE
     Indication: Diffuse large B-cell lymphoma
     Dosage: 983 MILLIGRAM, SINGLE
     Route: 041
     Dates: start: 20230620, end: 20230620
  6. CYCLOPHOSPHAMIDE [Concomitant]
     Active Substance: CYCLOPHOSPHAMIDE
     Dosage: 950 MILLIGRAM
     Route: 041
     Dates: start: 20230711, end: 20231010
  7. DOXORUBICIN HYDROCHLORIDE [Concomitant]
     Active Substance: DOXORUBICIN HYDROCHLORIDE
     Indication: Diffuse large B-cell lymphoma
     Dosage: 65 MILLIGRAM, SINGLE
     Route: 041
     Dates: start: 20230620, end: 20230620
  8. DOXORUBICIN HYDROCHLORIDE [Concomitant]
     Active Substance: DOXORUBICIN HYDROCHLORIDE
     Dosage: 63 MILLIGRAM
     Route: 041
     Dates: start: 20230711, end: 20231010
  9. PREDNISOLONE [Concomitant]
     Active Substance: PREDNISOLONE
     Indication: Diffuse large B-cell lymphoma
     Dosage: 100 MILLIGRAM, QD
     Route: 048
     Dates: start: 20230620, end: 20230624
  10. PREDNISOLONE [Concomitant]
     Active Substance: PREDNISOLONE
     Dosage: 100 MILLIGRAM, QD
     Route: 048
     Dates: start: 20230711, end: 20230715
  11. PREDNISOLONE [Concomitant]
     Active Substance: PREDNISOLONE
     Dosage: 100 MILLIGRAM, QD
     Route: 048
     Dates: start: 20230801, end: 20230805
  12. PREDNISOLONE [Concomitant]
     Active Substance: PREDNISOLONE
     Dosage: 100 MILLIGRAM, QD
     Route: 048
     Dates: start: 20230822, end: 20230826
  13. PREDNISOLONE [Concomitant]
     Active Substance: PREDNISOLONE
     Dosage: 100 MILLIGRAM, QD
     Route: 048
     Dates: start: 20230919, end: 20230923
  14. PREDNISOLONE [Concomitant]
     Active Substance: PREDNISOLONE
     Dosage: 100 MILLIGRAM, QD
     Route: 048
     Dates: start: 20231010, end: 20231014

REACTIONS (2)
  - Gastric ulcer [Recovered/Resolved]
  - COVID-19 [Unknown]

NARRATIVE: CASE EVENT DATE: 20230829
